FAERS Safety Report 6602109-0 (Version None)
Quarter: 2010Q1

REPORT INFORMATION
  Report Type: 
  Country: None (occurrence: None)
  Receive Date: 20100225
  Receipt Date: 20100216
  Transmission Date: 20100710
  Serious: Yes (Hospitalization, Other)
  Sender: FDA-Public Use
  Company Number: PHEH2009US14644

PATIENT
  Sex: Male
  Weight: 81.633 kg

DRUGS (8)
  1. EXJADE [Suspect]
     Indication: MYELODYSPLASTIC SYNDROME
     Dosage: 1500 MG DAILY
     Route: 048
     Dates: start: 20090820, end: 20091026
  2. EXJADE [Suspect]
     Indication: IRON OVERLOAD
  3. GLUCOPHAGE [Concomitant]
     Dosage: UNK, UNK
     Dates: end: 20091001
  4. REVLIMID [Concomitant]
     Indication: MYELODYSPLASTIC SYNDROME
     Dosage: 5 MG FOR 21 DAYS EVERY 28 DAYS
     Route: 048
     Dates: start: 20080708, end: 20091116
  5. DACOGEN [Concomitant]
     Indication: MYELODYSPLASTIC SYNDROME
     Dosage: UNK, UNK
  6. LANTUS [Concomitant]
     Indication: DIABETES MELLITUS
     Dosage: UNK, UNK
     Route: 058
  7. DIGOXIN [Concomitant]
     Indication: ATRIAL FIBRILLATION
     Dosage: UNK, UNK
     Route: 048
  8. GLIPIZIDE [Concomitant]
     Indication: DIABETES MELLITUS
     Dosage: UNK, UNK
     Route: 048

REACTIONS (7)
  - BLOOD CREATININE INCREASED [None]
  - CELLULITIS [None]
  - ERYTHEMA [None]
  - NEUTROPENIA [None]
  - PROTEIN TOTAL DECREASED [None]
  - PYREXIA [None]
  - RENAL FAILURE ACUTE [None]
